FAERS Safety Report 19828555 (Version 1)
Quarter: 2021Q3

REPORT INFORMATION
  Report Type: Report from Study
  Country: None (occurrence: CR)
  Receive Date: 20210915
  Receipt Date: 20210915
  Transmission Date: 20211014
  Serious: Yes (Other)
  Sender: FDA-Public Use
  Company Number: CR-ABBVIE-21K-039-4036124-00

PATIENT
  Age: 36 Year
  Sex: Female
  Weight: 72 kg

DRUGS (1)
  1. HUMIRA [Suspect]
     Active Substance: ADALIMUMAB
     Indication: UVEITIS
     Route: 058
     Dates: start: 20210324, end: 20210904

REACTIONS (11)
  - Headache [Recovering/Resolving]
  - Ear infection [Not Recovered/Not Resolved]
  - Uveitis [Recovering/Resolving]
  - Vitreous floaters [Not Recovered/Not Resolved]
  - Visual impairment [Recovering/Resolving]
  - Ocular discomfort [Recovering/Resolving]
  - Photopsia [Not Recovered/Not Resolved]
  - Nervous system disorder [Recovered/Resolved]
  - Vision blurred [Recovering/Resolving]
  - Weight increased [Not Recovered/Not Resolved]
  - Ear infection [Recovered/Resolved]

NARRATIVE: CASE EVENT DATE: 2021
